FAERS Safety Report 20942751 (Version 5)
Quarter: 2022Q4

REPORT INFORMATION
  Report Type: Spontaneous
  Country: US (occurrence: US)
  Receive Date: 20220610
  Receipt Date: 20221031
  Transmission Date: 20230113
  Serious: Yes (Other)
  Sender: FDA-Public Use
  Company Number: US-BRISTOL-MYERS SQUIBB COMPANY-2022-050926

PATIENT
  Age: 76 Year
  Sex: Male

DRUGS (2)
  1. REVLIMID [Suspect]
     Active Substance: LENALIDOMIDE
     Indication: Product used for unknown indication
     Dosage: 1 CAPSULE (5 MILLIGRAM) DAILY ON DAYS 1-21 OF EACH 28 DAY CYCLE?ADDITIONAL BATCH NUMBER: A3666E
     Route: 048
     Dates: start: 20220518
  2. REVLIMID [Suspect]
     Active Substance: LENALIDOMIDE
     Dosage: 1 CAPSULE (10 MILLIGRAM) DAILY?ADDITIONAL BATCH NUMBER: A3762A
     Route: 048

REACTIONS (5)
  - Hypotension [Recovering/Resolving]
  - Dyspnoea [Unknown]
  - Laboratory test abnormal [Not Recovered/Not Resolved]
  - Protein urine present [Unknown]
  - Constipation [Recovered/Resolved]
